FAERS Safety Report 15937628 (Version 1)
Quarter: 2019Q1

REPORT INFORMATION
  Report Type: Spontaneous
  Country: US (occurrence: US)
  Receive Date: 20190208
  Receipt Date: 20190208
  Transmission Date: 20190417
  Serious: Yes (Hospitalization, Other)
  Sender: FDA-Public Use
  Company Number: US-JNJFOC-20190203303

PATIENT
  Age: 37 Year
  Sex: Male

DRUGS (1)
  1. INVOKANA [Suspect]
     Active Substance: CANAGLIFLOZIN
     Indication: TYPE 2 DIABETES MELLITUS
     Route: 048
     Dates: start: 20140909

REACTIONS (9)
  - Ulcer [Unknown]
  - Cellulitis [Unknown]
  - Soft tissue infection [Unknown]
  - Diabetic foot [Unknown]
  - Limb amputation [Unknown]
  - Ankle deformity [Unknown]
  - Abscess limb [Unknown]
  - Foot fracture [Unknown]
  - Osteomyelitis [Unknown]

NARRATIVE: CASE EVENT DATE: 201512
